FAERS Safety Report 5867370-9 (Version None)
Quarter: 2008Q3

REPORT INFORMATION
  Report Type: 
  Country: None (occurrence: None)
  Receive Date: 20080902
  Receipt Date: 20080825
  Transmission Date: 20090109
  Serious: Yes (Other)
  Sender: FDA-Public Use
  Company Number: PHHY2008JP12553

PATIENT
  Age: 84 Year
  Sex: Female

DRUGS (5)
  1. DIOVAN [Suspect]
     Dosage: 80 MG PER DAY
     Route: 048
     Dates: start: 20080528, end: 20080627
  2. NORVASC [Concomitant]
     Dosage: 5 MG, UNK
  3. DEPAS [Concomitant]
     Dosage: UNK
  4. LANSOPRAZOLE [Concomitant]
     Dosage: UNK
  5. ALFAROL [Concomitant]
     Dosage: UNK

REACTIONS (2)
  - BLINDNESS UNILATERAL [None]
  - MACULAR DEGENERATION [None]
